FAERS Safety Report 8171482-7 (Version None)
Quarter: 2012Q1

REPORT INFORMATION
  Report Type: 
  Country: None (occurrence: None)
  Receive Date: 20120104
  Receipt Date: 20111123
  Transmission Date: 20120608
  Serious: No
  Sender: FDA-Public Use
  Company Number: 2011HGS-002862

PATIENT
  Age: 49 Year
  Sex: Female
  Weight: 127.0072 kg

DRUGS (6)
  1. BENLYSTA [Suspect]
     Indication: SYSTEMIC LUPUS ERYTHEMATOSUS
     Dosage: 1 IN 28 D, INTRAVENOUS DRIP
     Route: 041
     Dates: start: 20110701
  2. FUROSEMIDE [Concomitant]
  3. PREDNISONE [Concomitant]
  4. ATENOLOL (ATENOLOL)(ATENOLOL) [Concomitant]
  5. CELLCEPT (MYCOPHENOLATE MOFETIL)(MYCOPHENOLATE MOFETIL) [Concomitant]
  6. PLAQUENIL (HYDROXYCHLOROQUINE SULFATE)(HYDROXYCHLOROQUINE SULFATE) [Concomitant]

REACTIONS (1)
  - LOCALISED INFECTION [None]
